FAERS Safety Report 24203696 (Version 4)
Quarter: 2024Q3

REPORT INFORMATION
  Report Type: Spontaneous
  Country: US (occurrence: US)
  Receive Date: 20240813
  Receipt Date: 20240910
  Transmission Date: 20241017
  Serious: No
  Sender: AMGEN
  Company Number: US-AMGEN-USASP2024160434

PATIENT
  Sex: Female

DRUGS (1)
  1. REPATHA [Suspect]
     Active Substance: EVOLOCUMAB
     Indication: Product used for unknown indication
     Dosage: UNK
     Route: 065

REACTIONS (8)
  - Swelling [Unknown]
  - Blister [Unknown]
  - Contusion [Unknown]
  - Oral disorder [Not Recovered/Not Resolved]
  - Tongue disorder [Not Recovered/Not Resolved]
  - Lip disorder [Not Recovered/Not Resolved]
  - Skin disorder [Recovering/Resolving]
  - Feeding disorder [Unknown]

NARRATIVE: CASE EVENT DATE: 20240101
